FAERS Safety Report 8394992-6 (Version None)
Quarter: 2012Q2

REPORT INFORMATION
  Report Type: 
  Country: None (occurrence: None)
  Receive Date: 20120530
  Receipt Date: 20120518
  Transmission Date: 20120825
  Serious: No
  Sender: FDA-Public Use
  Company Number: AR-ELI_LILLY_AND_COMPANY-AR201205006948

PATIENT
  Age: 22 Year
  Sex: Male

DRUGS (1)
  1. OLANZAPINE [Suspect]
     Indication: SCHIZOPHRENIA
     Dosage: 20 MG, QD

REACTIONS (1)
  - LEUKOPENIA [None]
